FAERS Safety Report 4755854-6 (Version None)
Quarter: 2005Q3

REPORT INFORMATION
  Report Type: 
  Country: None (occurrence: None)
  Receive Date: 20050830
  Receipt Date: 20050531
  Transmission Date: 20060218
  Serious: No
  Sender: FDA-Public Use
  Company Number: US-BRISTOL-MYERS SQUIBB COMPANY-12987673

PATIENT
  Age: 43 Year
  Sex: Female
  Weight: 52 kg

DRUGS (5)
  1. ERBITUX [Suspect]
     Indication: COLORECTAL CANCER METASTATIC
     Route: 042
     Dates: start: 20050526, end: 20050526
  2. CAMPTOSAR [Concomitant]
     Dates: start: 20050526, end: 20050526
  3. BENADRYL [Concomitant]
     Indication: PREMEDICATION
     Dates: start: 20050526, end: 20050526
  4. ALOXI [Concomitant]
     Indication: PREMEDICATION
     Dates: start: 20050526, end: 20050526
  5. DECADRON [Concomitant]
     Indication: PREMEDICATION
     Dates: start: 20050526, end: 20050526

REACTIONS (2)
  - BLISTER [None]
  - RASH [None]
